FAERS Safety Report 8259889-0 (Version None)
Quarter: 2012Q2

REPORT INFORMATION
  Report Type: 
  Country: None (occurrence: None)
  Receive Date: 20120404
  Receipt Date: 20120327
  Transmission Date: 20120825
  Serious: Yes (Hospitalization, Other)
  Sender: FDA-Public Use
  Company Number: CZ-GLAXOSMITHKLINE-B0790874A

PATIENT
  Age: 15 Year
  Sex: Male

DRUGS (1)
  1. LAMICTAL [Suspect]

REACTIONS (6)
  - CONJUNCTIVAL HYPERAEMIA [None]
  - SYMBLEPHARON [None]
  - OCULAR DISCOMFORT [None]
  - TOXIC EPIDERMAL NECROLYSIS [None]
  - EYELID OEDEMA [None]
  - DACRYOSTENOSIS ACQUIRED [None]
